FAERS Safety Report 4541418-6 (Version None)
Quarter: 2004Q4

REPORT INFORMATION
  Report Type: 
  Country: None (occurrence: None)
  Receive Date: 20041229
  Receipt Date: 20041222
  Transmission Date: 20050328
  Serious: Yes (Life-Threatening, Disabling)
  Sender: FDA-Public Use
  Company Number: US-MERCK-0412USA02746

PATIENT
  Age: 50 Year
  Sex: Female

DRUGS (3)
  1. VIOXX [Suspect]
     Indication: ARTHRITIS
     Route: 048
     Dates: start: 20001201
  2. VIOXX [Suspect]
     Route: 048
     Dates: start: 20001201
  3. PLAQUENIL [Concomitant]
     Route: 065

REACTIONS (1)
  - CHEST PAIN [None]
